FAERS Safety Report 4351041-4 (Version None)
Quarter: 2004Q2

REPORT INFORMATION
  Report Type: 
  Country: None (occurrence: None)
  Receive Date: 20040427
  Receipt Date: 20020716
  Transmission Date: 20050107
  Serious: Yes (Hospitalization)
  Sender: FDA-Public Use
  Company Number: 2002CG01114

PATIENT
  Age: 75 Year
  Sex: Male

DRUGS (6)
  1. XYLOCAINE [Suspect]
     Dates: start: 20020304, end: 20020304
  2. BETADINE [Suspect]
     Dates: start: 20020304, end: 20020304
  3. NO MATCH [Suspect]
     Dates: start: 20020304, end: 20020304
  4. BSS [Suspect]
     Dates: start: 20020304, end: 20020304
  5. STERDEX [Suspect]
     Dates: start: 20020304, end: 20020304
  6. OFLOCET [Concomitant]

REACTIONS (6)
  - ANAESTHETIC COMPLICATION [None]
  - CATARACT OPERATION COMPLICATION [None]
  - ENDOPHTHALMITIS [None]
  - OFF LABEL USE [None]
  - SURGICAL PROCEDURE REPEATED [None]
  - VITREOUS DISORDER [None]
